FAERS Safety Report 13587092 (Version 1)
Quarter: 2017Q2

REPORT INFORMATION
  Report Type: Report from Study
  Country: US (occurrence: US)
  Receive Date: 20170526
  Receipt Date: 20170526
  Transmission Date: 20170830
  Serious: Yes (Hospitalization, Other)
  Sender: FDA-Public Use
  Company Number: US-GILEAD-2017-0273772

PATIENT
  Age: 52 Year
  Sex: Male
  Weight: 38.7 kg

DRUGS (8)
  1. ICLUSIG [Concomitant]
     Active Substance: PONATINIB
  2. MAGONATE [Concomitant]
     Active Substance: MAGNESIUM CARBONATE
  3. AMBIEN [Concomitant]
     Active Substance: ZOLPIDEM TARTRATE
  4. SOFOSBUVIR W/VELPATASVIR [Suspect]
     Active Substance: SOFOSBUVIR\VELPATASVIR
     Indication: HEPATITIS C
     Dosage: 1 DF, QD
     Route: 065
     Dates: start: 20170222
  5. COLACE [Concomitant]
     Active Substance: DOCUSATE SODIUM
  6. ZOFRAN [Concomitant]
     Active Substance: ONDANSETRON HYDROCHLORIDE
  7. PRINIVIL [Concomitant]
     Active Substance: LISINOPRIL
  8. MYLANTA [Concomitant]
     Active Substance: ALUMINUM HYDROXIDE\DIMETHICONE\MAGNESIUM HYDROXIDE

REACTIONS (1)
  - Meningitis staphylococcal [Recovering/Resolving]

NARRATIVE: CASE EVENT DATE: 20170228
